APPROVED DRUG PRODUCT: KENALOG-40
Active Ingredient: TRIAMCINOLONE ACETONIDE
Strength: 40MG/ML
Dosage Form/Route: INJECTABLE;INJECTION
Application: N014901 | Product #001 | TE Code: AB
Applicant: APOTHECON INC DIV BRISTOL MYERS SQUIBB
Approved: Approved Prior to Jan 1, 1982 | RLD: Yes | RS: Yes | Type: RX